FAERS Safety Report 6557101-1 (Version None)
Quarter: 2010Q1

REPORT INFORMATION
  Report Type: 
  Country: None (occurrence: None)
  Receive Date: 20100128
  Receipt Date: 20100120
  Transmission Date: 20100710
  Serious: Yes (Hospitalization)
  Sender: FDA-Public Use
  Company Number: GB-AMGEN-US371352

PATIENT
  Sex: Female
  Weight: 130 kg

DRUGS (11)
  1. ENBREL [Suspect]
     Indication: RHEUMATOID ARTHRITIS
     Route: 058
     Dates: start: 20061115
  2. ATENOLOL [Concomitant]
     Dosage: UNKNOWN
  3. FOLIC ACID [Concomitant]
     Dosage: UNKNOWN
  4. LANSOPRAZOLE [Concomitant]
     Dosage: UNKNOWN
  5. METHOTREXATE [Concomitant]
     Dosage: UNKNOWN
  6. PREDNISOLONE [Concomitant]
     Dosage: UNKNOWN
  7. RAMIPRIL [Concomitant]
     Dosage: UNKNOWN
  8. SIMVASTATIN [Concomitant]
     Dosage: UNKNOWN
  9. VENLAFAXINE HCL [Concomitant]
     Dosage: UNKNOWN
  10. ALENDRONATE SODIUM [Concomitant]
     Dosage: UNKNOWN
  11. NABUMETONE [Concomitant]
     Dosage: UNKNOWN

REACTIONS (3)
  - AMNESIA [None]
  - COORDINATION ABNORMAL [None]
  - SPEECH DISORDER [None]
